FAERS Safety Report 21611435 (Version 1)
Quarter: 2022Q4

REPORT INFORMATION
  Report Type: Report from Study
  Country: US (occurrence: US)
  Receive Date: 20221117
  Receipt Date: 20221117
  Transmission Date: 20230113
  Serious: Yes (Other)
  Sender: FDA-Public Use
  Company Number: US-ABBVIE-4203863

PATIENT
  Sex: Female

DRUGS (1)
  1. RINVOQ [Suspect]
     Active Substance: UPADACITINIB
     Indication: Rheumatoid arthritis
     Route: 048

REACTIONS (6)
  - Shoulder operation [Unknown]
  - Incision site erythema [Unknown]
  - Incision site discharge [Unknown]
  - Pruritus [Unknown]
  - Fungal skin infection [Unknown]
  - Lip blister [Unknown]
